FAERS Safety Report 5763675-0 (Version None)
Quarter: 2008Q2

REPORT INFORMATION
  Report Type: 
  Country: None (occurrence: None)
  Receive Date: 20080610
  Receipt Date: 20080212
  Transmission Date: 20081010
  Serious: No
  Sender: FDA-Public Use
  Company Number: US-BAYER-200814120NA

PATIENT
  Sex: Female

DRUGS (1)
  1. MIRENA [Suspect]
     Indication: DRUG USE FOR UNKNOWN INDICATION
     Route: 015
     Dates: start: 20080208

REACTIONS (7)
  - ABDOMINAL PAIN [None]
  - GENITAL HAEMORRHAGE [None]
  - HYPOMENORRHOEA [None]
  - MENSTRUAL DISORDER [None]
  - PROCEDURAL DIZZINESS [None]
  - PROCEDURAL PAIN [None]
  - VAGINAL HAEMORRHAGE [None]
